FAERS Safety Report 10094393 (Version 1)
Quarter: 2014Q2

REPORT INFORMATION
  Report Type: Spontaneous
  Country: US (occurrence: None)
  Receive Date: 20140421
  Receipt Date: 20140421
  Transmission Date: 20141212
  Serious: No
  Sender: FDA-Public Use
  Company Number: None

PATIENT
  Age: 75 Year
  Sex: Female
  Weight: 62.6 kg

DRUGS (1)
  1. PRAVASTIN [Suspect]
     Indication: BLOOD CHOLESTEROL ABNORMAL
     Dosage: 1 PILL ONCE DAILY

REACTIONS (5)
  - Pain [None]
  - Abdominal pain upper [None]
  - Gastrooesophageal reflux disease [None]
  - Alanine aminotransferase increased [None]
  - Pain in extremity [None]
